FAERS Safety Report 7604751-7 (Version None)
Quarter: 2011Q3

REPORT INFORMATION
  Report Type: 
  Country: None (occurrence: None)
  Receive Date: 20110712
  Receipt Date: 20110705
  Transmission Date: 20111222
  Serious: Yes (Other)
  Sender: FDA-Public Use
  Company Number: PHHY2011US07864

PATIENT
  Sex: Male
  Weight: 79.365 kg

DRUGS (19)
  1. GILENYA [Suspect]
     Indication: MULTIPLE SCLEROSIS RELAPSE
     Dosage: 0.5 MG, QD
     Route: 048
     Dates: start: 20110126
  2. ASCORBIC ACID [Concomitant]
     Dosage: UNK
  3. DETROL [Concomitant]
     Dosage: UNK
  4. MULTI-VITAMIN [Concomitant]
     Dosage: UNK
  5. LORATADINE [Concomitant]
     Dosage: UNK
  6. ACYCLOVIR [Concomitant]
     Dosage: UNK
  7. GILENYA [Suspect]
     Dosage: 0.5 MG, QD
     Route: 048
     Dates: start: 20110127
  8. PROVIGIL [Concomitant]
     Dosage: UNK
  9. CITALOPRAM [Concomitant]
     Dosage: UNK
  10. OXYCODONE HCL [Concomitant]
     Dosage: UNK
  11. TRAZODONE HCL [Concomitant]
     Dosage: UNK
  12. VALIUM [Concomitant]
     Dosage: UNK
  13. FENTANYL-100 [Concomitant]
     Dosage: UNK
  14. VITAMIN B-12 [Concomitant]
     Dosage: UNK
  15. DOCUSATE [Concomitant]
     Dosage: UNK
  16. LEVOTHYROXINE SODIUM [Concomitant]
     Dosage: UNK
  17. BACLOFEN [Concomitant]
     Dosage: UNK
  18. CYCLOBENAZPRINE [Concomitant]
     Dosage: UNK
  19. LORAZEPAM [Concomitant]
     Dosage: UNK

REACTIONS (7)
  - HALLUCINATION [None]
  - PYREXIA [None]
  - OROPHARYNGEAL PAIN [None]
  - FEELING OF BODY TEMPERATURE CHANGE [None]
  - INFLUENZA LIKE ILLNESS [None]
  - VOMITING [None]
  - VIRAL INFECTION [None]
